FAERS Safety Report 5960129-3 (Version None)
Quarter: 2008Q4

REPORT INFORMATION
  Report Type: 
  Country: None (occurrence: None)
  Receive Date: 20081118
  Receipt Date: 20081118
  Transmission Date: 20090506
  Serious: Yes (Hospitalization)
  Sender: FDA-Public Use
  Company Number: None

PATIENT
  Sex: Female
  Weight: 85.2762 kg

DRUGS (1)
  1. MIRENA [Suspect]
     Indication: CONTRACEPTION
     Dates: start: 20080801, end: 20081119

REACTIONS (10)
  - BREAST TENDERNESS [None]
  - EMOTIONAL DISORDER [None]
  - FATIGUE [None]
  - HAEMORRHAGE [None]
  - HYPOAESTHESIA [None]
  - IUCD COMPLICATION [None]
  - NAUSEA [None]
  - OVARIAN CYST [None]
  - VAGINAL DISCHARGE [None]
  - VITAMIN B12 DEFICIENCY [None]
